FAERS Safety Report 22151154 (Version 2)
Quarter: 2023Q4

REPORT INFORMATION
  Report Type: Spontaneous
  Country: US (occurrence: US)
  Receive Date: 20230329
  Receipt Date: 20231013
  Transmission Date: 20240110
  Serious: Yes (Other)
  Sender: FDA-Public Use
  Company Number: US-BRISTOL-MYERS SQUIBB COMPANY-2023-041758

PATIENT
  Age: 89 Year
  Sex: Male

DRUGS (1)
  1. POMALYST [Suspect]
     Active Substance: POMALIDOMIDE
     Indication: Plasma cell myeloma
     Route: 048
     Dates: start: 20221219

REACTIONS (6)
  - Amnesia [Unknown]
  - Macule [Unknown]
  - Ear neoplasm malignant [Unknown]
  - Headache [Unknown]
  - Thyroid hormones decreased [Unknown]
  - Aggression [Unknown]
